FAERS Safety Report 18343686 (Version 1)
Quarter: 2020Q4

REPORT INFORMATION
  Report Type: Spontaneous
  Country: JP (occurrence: JP)
  Receive Date: 20201005
  Receipt Date: 20201005
  Transmission Date: 20210114
  Serious: Yes (Other)
  Sender: FDA-Public Use
  Company Number: JP-TAKEDA-2020TJP021226

PATIENT
  Sex: Female

DRUGS (1)
  1. TAKEPRON OD TABLETS 15 [Suspect]
     Active Substance: LANSOPRAZOLE
     Indication: GASTROOESOPHAGEAL REFLUX DISEASE
     Dosage: DOSAGE IS UNKNOWN
     Route: 048
     Dates: end: 20200926

REACTIONS (7)
  - Oedema peripheral [Unknown]
  - Haemorrhage subcutaneous [Unknown]
  - Dysphonia [Unknown]
  - Productive cough [Recovering/Resolving]
  - Therapy cessation [Unknown]
  - Rash [Recovering/Resolving]
  - Pruritus [Recovered/Resolved]
